FAERS Safety Report 26097394 (Version 2)
Quarter: 2025Q4

REPORT INFORMATION
  Report Type: Spontaneous
  Country: CH (occurrence: CH)
  Receive Date: 20251127
  Receipt Date: 20251219
  Transmission Date: 20260118
  Serious: Yes (Other)
  Sender: ROCHE
  Company Number: CH-ROCHE-10000442515

PATIENT
  Sex: Female

DRUGS (2)
  1. MABTHERA [Suspect]
     Active Substance: RITUXIMAB
     Indication: Product used for unknown indication
     Dates: start: 20200831
  2. MABTHERA [Suspect]
     Active Substance: RITUXIMAB
     Dates: start: 20200915

REACTIONS (2)
  - Myelitis [Unknown]
  - Fatigue [Unknown]
